FAERS Safety Report 6286068-9 (Version None)
Quarter: 2009Q3

REPORT INFORMATION
  Report Type: 
  Country: None (occurrence: None)
  Receive Date: 20090728
  Receipt Date: 20090604
  Transmission Date: 20100115
  Serious: Yes (Other)
  Sender: FDA-Public Use
  Company Number: US-NAPPMUNDI-USA-2009-0038732

PATIENT
  Sex: Male
  Weight: 97.959 kg

DRUGS (4)
  1. OXYCONTIN [Suspect]
     Indication: BACK PAIN
     Dosage: 60 MG, DAILY
     Dates: start: 20001113, end: 20030101
  2. LIPITOR [Concomitant]
  3. ASPIRIN [Concomitant]
  4. ALLEGRA D                          /01367401/ [Concomitant]

REACTIONS (12)
  - BONE PAIN [None]
  - CHILLS [None]
  - DIARRHOEA [None]
  - DRUG DEPENDENCE [None]
  - DRUG WITHDRAWAL SYNDROME [None]
  - HALLUCINATION [None]
  - INFLUENZA LIKE ILLNESS [None]
  - MENTAL DISORDER [None]
  - NAUSEA [None]
  - PYREXIA [None]
  - SUICIDAL IDEATION [None]
  - VOMITING [None]
